FAERS Safety Report 4641932-9 (Version None)
Quarter: 2005Q2

REPORT INFORMATION
  Report Type: 
  Country: None (occurrence: None)
  Receive Date: 20050421
  Receipt Date: 20050406
  Transmission Date: 20051028
  Serious: Yes (Hospitalization)
  Sender: FDA-Public Use
  Company Number: TPA2005A00026

PATIENT
  Age: 58 Year
  Sex: Female
  Weight: 82.4 kg

DRUGS (10)
  1. PIOGLITAZONE HCL [Suspect]
     Indication: GLUCOSE TOLERANCE IMPAIRED
     Dosage: 1 IN 1 D, PER ORAL
     Route: 048
     Dates: start: 20040331
  2. TESTOSTERONE [Concomitant]
  3. ESTRADIOL [Concomitant]
  4. PROGESTERONE [Concomitant]
  5. SEROQUEL [Concomitant]
  6. DALMANE [Concomitant]
  7. SKELAXIN [Concomitant]
  8. SYNTHROID [Concomitant]
  9. PROZAC [Concomitant]
  10. GYNEDIOL (ESTRADIOL) [Concomitant]

REACTIONS (1)
  - KIDNEY INFECTION [None]
